FAERS Safety Report 12585793 (Version 1)
Quarter: 2016Q3

REPORT INFORMATION
  Report Type: Spontaneous
  Country: US (occurrence: US)
  Receive Date: 20160725
  Receipt Date: 20160725
  Transmission Date: 20161109
  Serious: No
  Sender: FDA-Public Use
  Company Number: US-NOVEN PHARMACEUTICALS, INC.-US2016000928

PATIENT

DRUGS (3)
  1. BRISDELLE [Suspect]
     Active Substance: PAROXETINE MESYLATE
     Indication: ANGER
     Dosage: 7.5 MG, UNKNOWN
     Route: 048
  2. BRISDELLE [Suspect]
     Active Substance: PAROXETINE MESYLATE
     Indication: ANXIETY
  3. BRISDELLE [Suspect]
     Active Substance: PAROXETINE MESYLATE
     Indication: DISTURBANCE IN SEXUAL AROUSAL

REACTIONS (2)
  - Off label use [Unknown]
  - No adverse event [Unknown]
